FAERS Safety Report 13090508 (Version 1)
Quarter: 2017Q1

REPORT INFORMATION
  Report Type: Spontaneous
  Country: US (occurrence: US)
  Receive Date: 20170105
  Receipt Date: 20170105
  Transmission Date: 20170428
  Serious: No
  Sender: FDA-Public Use
  Company Number: US-PFM-2016-02574

PATIENT

DRUGS (2)
  1. HEMANGEOL [Suspect]
     Active Substance: PROPRANOLOL HYDROCHLORIDE
     Indication: INFANTILE HAEMANGIOMA
     Dosage: GRADUALLY INCREASED TO 1.8ML BID
     Route: 048
     Dates: start: 20160926
  2. HEMANGEOL [Suspect]
     Active Substance: PROPRANOLOL HYDROCHLORIDE
     Dosage: 0.25ML IN THE MORNING AND 0.5ML FOR THE SECOND DOSE
     Route: 048

REACTIONS (2)
  - Somnolence [Unknown]
  - Decreased appetite [Unknown]
